FAERS Safety Report 7265165-5 (Version None)
Quarter: 2011Q1

REPORT INFORMATION
  Report Type: 
  Country: None (occurrence: None)
  Receive Date: 20110131
  Receipt Date: 20110127
  Transmission Date: 20110831
  Serious: Yes (Other)
  Sender: FDA-Public Use
  Company Number: US-AMGEN-USASP2010010589

PATIENT
  Age: 82 Year
  Sex: Female

DRUGS (5)
  1. NPLATE [Suspect]
     Dates: end: 20100827
  2. CORTICOSTEROIDS [Concomitant]
     Dosage: UNK
     Dates: start: 20100422
  3. IMMUNOGLOBULINS [Concomitant]
     Dosage: UNK
     Route: 042
     Dates: start: 20100428
  4. NPLATE [Suspect]
     Indication: IDIOPATHIC THROMBOCYTOPENIC PURPURA
     Dosage: 740 A?G, UNK
     Dates: start: 20100506, end: 20100827
  5. NPLATE [Suspect]
     Dates: end: 20100827

REACTIONS (1)
  - THERAPEUTIC RESPONSE DECREASED [None]
